FAERS Safety Report 12489944 (Version 1)
Quarter: 2016Q2

REPORT INFORMATION
  Report Type: Spontaneous
  Country: TN (occurrence: TN)
  Receive Date: 20160622
  Receipt Date: 20160622
  Transmission Date: 20160815
  Serious: Yes (Other)
  Sender: FDA-Public Use
  Company Number: TN-CORDEN PHARMA LATINA S.P.A.-TN-2016COR000177

PATIENT
  Age: 5 Year
  Sex: Male

DRUGS (3)
  1. CARBOPLATIN. [Suspect]
     Active Substance: CARBOPLATIN
     Indication: BURKITT^S LYMPHOMA
     Dosage: DOSE REDUCED TO TWO-THIRDS
     Route: 065
  2. ETOPOSIDE. [Suspect]
     Active Substance: ETOPOSIDE
     Indication: BURKITT^S LYMPHOMA
     Dosage: DOSE REDUCED TO TWO-THIRDS
     Route: 065
  3. IFOSFAMIDE. [Suspect]
     Active Substance: IFOSFAMIDE
     Indication: BURKITT^S LYMPHOMA
     Dosage: DOSE REDUCED TO TWO-THIRDS
     Route: 065

REACTIONS (2)
  - Bone marrow failure [Unknown]
  - Mucosal inflammation [Unknown]
